FAERS Safety Report 8117954-2 (Version None)
Quarter: 2012Q1

REPORT INFORMATION
  Report Type: 
  Country: None (occurrence: None)
  Receive Date: 20120207
  Receipt Date: 20120126
  Transmission Date: 20120608
  Serious: Yes (Hospitalization)
  Sender: FDA-Public Use
  Company Number: US-JNJFOC-20120112797

PATIENT
  Sex: Male
  Weight: 45.36 kg

DRUGS (4)
  1. REMICADE [Suspect]
     Route: 042
     Dates: start: 20100101, end: 20110101
  2. NEXIUM [Concomitant]
     Indication: DYSPEPSIA
     Route: 048
     Dates: start: 20100101
  3. REMICADE [Suspect]
     Indication: CROHN'S DISEASE
     Route: 042
     Dates: start: 20110101
  4. ASACOL [Concomitant]
     Dosage: 2400 DAILY
     Route: 065
     Dates: start: 20100101

REACTIONS (9)
  - CROHN'S DISEASE [None]
  - DIZZINESS [None]
  - CLOSTRIDIAL INFECTION [None]
  - DEHYDRATION [None]
  - CHEST PAIN [None]
  - PYREXIA [None]
  - INFLAMMATORY MARKER INCREASED [None]
  - BLOOD PRESSURE DECREASED [None]
  - HEADACHE [None]
